FAERS Safety Report 19116495 (Version 1)
Quarter: 2021Q2

REPORT INFORMATION
  Report Type: Spontaneous
  Country: CN (occurrence: CN)
  Receive Date: 20210409
  Receipt Date: 20210409
  Transmission Date: 20210717
  Serious: Yes (Other)
  Sender: FDA-Public Use
  Company Number: CN-GUERBET-CN-20210051

PATIENT
  Age: 63 Year
  Sex: Female

DRUGS (1)
  1. IOVERSOL [Suspect]
     Active Substance: IOVERSOL
     Indication: COMPUTERISED TOMOGRAM HEAD
     Route: 065
     Dates: start: 20200527, end: 20200527

REACTIONS (6)
  - Cyanosis [Recovered/Resolved]
  - Extravasation [Recovered/Resolved]
  - Injection site erythema [Recovered/Resolved]
  - Injection site vesicles [Recovered/Resolved]
  - Injection site swelling [Recovered/Resolved]
  - Pain [Recovered/Resolved]

NARRATIVE: CASE EVENT DATE: 20200527
